FAERS Safety Report 10689115 (Version 2)
Quarter: 2015Q1

REPORT INFORMATION
  Report Type: Spontaneous
  Country: US (occurrence: US)
  Receive Date: 20150104
  Receipt Date: 20150114
  Transmission Date: 20150720
  Serious: Yes (Hospitalization, Other)
  Sender: FDA-Public Use
  Company Number: US-AMGEN-USASP2014101926

PATIENT
  Age: 63 Year
  Sex: Female
  Weight: 69.08 kg

DRUGS (3)
  1. CELEBREX [Concomitant]
     Active Substance: CELECOXIB
     Dosage: 200 MG, PER DAY
     Route: 048
  2. ENBREL [Suspect]
     Active Substance: ETANERCEPT
     Indication: RHEUMATOID ARTHRITIS
     Dosage: 25 MG, 2 TIMES/WK
     Route: 065
     Dates: start: 20010512, end: 20141208
  3. CELEBREX [Concomitant]
     Active Substance: CELECOXIB
     Dosage: 200 MG, BID

REACTIONS (11)
  - Cervical spinal stenosis [Recovered/Resolved]
  - Limb injury [Unknown]
  - Rheumatoid arthritis [Unknown]
  - Fungal infection [Recovered/Resolved]
  - Wound [Unknown]
  - Drug ineffective [Unknown]
  - Intervertebral disc degeneration [Recovered/Resolved]
  - Pyrexia [Unknown]
  - Knee arthroplasty [Recovered/Resolved]
  - Injection site irritation [Recovered/Resolved]
  - Injection site pain [Recovered/Resolved]

NARRATIVE: CASE EVENT DATE: 201209
